FAERS Safety Report 10211651 (Version 1)
Quarter: 2014Q2

REPORT INFORMATION
  Report Type: Spontaneous
  Country: US (occurrence: US)
  Receive Date: 20140602
  Receipt Date: 20140602
  Transmission Date: 20141212
  Serious: No
  Sender: FDA-Public Use
  Company Number: US-GLAXOSMITHKLINE-A1069772A

PATIENT
  Sex: Female

DRUGS (2)
  1. FABIOR [Suspect]
     Indication: PRODUCT USED FOR UNKNOWN INDICATION
     Route: 061
  2. NO CONCURRENT MEDICATION [Concomitant]

REACTIONS (3)
  - Inflammation [Unknown]
  - Burning sensation [Unknown]
  - Post inflammatory pigmentation change [Unknown]
